FAERS Safety Report 8043966-3 (Version None)
Quarter: 2012Q1

REPORT INFORMATION
  Report Type: 
  Country: None (occurrence: None)
  Receive Date: 20120113
  Receipt Date: 20120104
  Transmission Date: 20120608
  Serious: No
  Sender: FDA-Public Use
  Company Number: US-BIOGENIDEC-2012BI000588

PATIENT
  Age: 49 Year
  Sex: Female

DRUGS (2)
  1. AVONEX [Suspect]
     Indication: MULTIPLE SCLEROSIS
     Route: 030
     Dates: start: 20080630
  2. AVONEX [Suspect]
     Route: 030
     Dates: start: 20010501, end: 20050101

REACTIONS (6)
  - IMPAIRED HEALING [None]
  - COORDINATION ABNORMAL [None]
  - HYPOPHAGIA [None]
  - INSOMNIA [None]
  - INJECTION SITE SCAR [None]
  - VIRAL INFECTION [None]
